FAERS Safety Report 22050306 (Version 1)
Quarter: 2023Q1

REPORT INFORMATION
  Report Type: Report from Study
  Country: CA (occurrence: CA)
  Receive Date: 20230301
  Receipt Date: 20230301
  Transmission Date: 20230417
  Serious: Yes (Other)
  Sender: FDA-Public Use
  Company Number: CA-TAKEDA-2021TUS019404

PATIENT
  Age: 58 Year
  Sex: Female

DRUGS (1)
  1. IXAZOMIB [Suspect]
     Active Substance: IXAZOMIB
     Indication: Plasma cell myeloma
     Dosage: 4 MILLIGRAM
     Route: 048
     Dates: start: 20210319

REACTIONS (5)
  - Pneumonia [Unknown]
  - Bronchitis [Unknown]
  - Asthenia [Unknown]
  - Diarrhoea [Unknown]
  - Off label use [Unknown]

NARRATIVE: CASE EVENT DATE: 20210319
